FAERS Safety Report 6523685-2 (Version None)
Quarter: 2009Q4

REPORT INFORMATION
  Report Type: 
  Country: None (occurrence: None)
  Receive Date: 20091231
  Receipt Date: 20091221
  Transmission Date: 20100525
  Serious: Yes (Other)
  Sender: FDA-Public Use
  Company Number: GB-NOVOPROD-302545

PATIENT

DRUGS (1)
  1. NOVOSEVEN [Suspect]
     Indication: HAEMORRHAGE
     Route: 042

REACTIONS (1)
  - DRUG INEFFECTIVE [None]
